FAERS Safety Report 22831309 (Version 25)
Quarter: 2024Q4

REPORT INFORMATION
  Report Type: Spontaneous
  Country: AT (occurrence: AT)
  Receive Date: 20230817
  Receipt Date: 20241227
  Transmission Date: 20250115
  Serious: Yes (Hospitalization, Other)
  Sender: ABBVIE
  Company Number: AT-ROCHE-3404424

PATIENT
  Age: 69 Year
  Sex: Male

DRUGS (17)
  1. VENETOCLAX [Suspect]
     Active Substance: VENETOCLAX
     Indication: Mantle cell lymphoma
     Dosage: POWDER FOR INFUSION
     Route: 048
  2. RITUXIMAB [Suspect]
     Active Substance: RITUXIMAB
     Indication: Mantle cell lymphoma
     Route: 065
  3. COLUMVI [Suspect]
     Active Substance: GLOFITAMAB-GXBM
     Indication: Mantle cell lymphoma
     Dosage: 2.5 MG
     Route: 065
     Dates: start: 20230816
  4. COLUMVI [Suspect]
     Active Substance: GLOFITAMAB-GXBM
     Indication: Mantle cell lymphoma
     Dosage: 10 MG
     Route: 065
  5. CYCLOPHOSPHAMIDE [Suspect]
     Active Substance: CYCLOPHOSPHAMIDE
     Indication: Mantle cell lymphoma
     Dosage: UNK (PFT-22001)
     Route: 065
  6. DOXORUBICIN HYDROCHLORIDE [Suspect]
     Active Substance: DOXORUBICIN HYDROCHLORIDE
     Indication: Mantle cell lymphoma
     Route: 065
  7. CYCLOPHOSPHAMIDE [Suspect]
     Active Substance: CYCLOPHOSPHAMIDE
     Indication: Mantle cell lymphoma
     Dosage: UNK
     Route: 065
  8. DEXAMETHASONE [Suspect]
     Active Substance: DEXAMETHASONE
     Indication: Mantle cell lymphoma
     Route: 065
  9. CYTARABINE [Suspect]
     Active Substance: CYTARABINE
     Indication: Mantle cell lymphoma
     Route: 065
  10. VINCRISTINE [Suspect]
     Active Substance: VINCRISTINE
     Indication: Mantle cell lymphoma
     Dosage: PDF-11201000
     Route: 065
  11. BORTEZOMIB [Suspect]
     Active Substance: BORTEZOMIB
     Indication: Mantle cell lymphoma
     Route: 065
  12. IMBRUVICA [Suspect]
     Active Substance: IBRUTINIB
     Indication: Mantle cell lymphoma
     Route: 048
  13. CYTARABINE [Suspect]
     Active Substance: CYTARABINE
     Indication: Mantle cell lymphoma
     Dosage: UNK (PFT-22120) 100MG
     Route: 065
  14. PREDNISONE [Suspect]
     Active Substance: PREDNISONE
     Indication: Mantle cell lymphoma
     Route: 065
  15. VELCADE [Suspect]
     Active Substance: BORTEZOMIB
     Indication: Mantle cell lymphoma
     Route: 065
  16. DECADRON (DEXAMETHASONE SODIUM PHOSPHATE) [Suspect]
     Active Substance: DEXAMETHASONE SODIUM PHOSPHATE
     Indication: Mantle cell lymphoma
     Dosage: INJECTION 1.65MG
     Route: 065
  17. BENDAMUSTINE [Suspect]
     Active Substance: BENDAMUSTINE
     Indication: Mantle cell lymphoma
     Route: 065

REACTIONS (4)
  - Cytokine release syndrome [Unknown]
  - Mantle cell lymphoma [Not Recovered/Not Resolved]
  - Off label use [Unknown]
  - Malignant neoplasm progression [Not Recovered/Not Resolved]

NARRATIVE: CASE EVENT DATE: 20230816
